FAERS Safety Report 16089967 (Version 4)
Quarter: 2019Q2

REPORT INFORMATION
  Report Type: Spontaneous
  Country: US (occurrence: US)
  Receive Date: 20190319
  Receipt Date: 20190527
  Transmission Date: 20190711
  Serious: No
  Sender: FDA-Public Use
  Company Number: US-SA-2019SA071414

PATIENT
  Sex: Female

DRUGS (1)
  1. LOVENOX [Suspect]
     Active Substance: ENOXAPARIN SODIUM
     Dosage: UNK UNK, UNK
     Route: 065

REACTIONS (4)
  - Needle issue [Unknown]
  - Contusion [Unknown]
  - Product quality issue [Unknown]
  - Product storage error [Unknown]
